FAERS Safety Report 4452919-3 (Version None)
Quarter: 2004Q3

REPORT INFORMATION
  Report Type: 
  Country: None (occurrence: None)
  Receive Date: 20040916
  Receipt Date: 20040902
  Transmission Date: 20050211
  Serious: Yes (Other)
  Sender: FDA-Public Use
  Company Number: 2004062440

PATIENT
  Age: 58 Year
  Sex: Male

DRUGS (1)
  1. DILANTIN [Suspect]
     Indication: CONVULSION
     Dosage: 300 MG, ORAL
     Route: 048
     Dates: start: 20030101

REACTIONS (2)
  - ANTICONVULSANT DRUG LEVEL DECREASED [None]
  - LOSS OF CONSCIOUSNESS [None]
